FAERS Safety Report 5175846-5 (Version None)
Quarter: 2006Q4

REPORT INFORMATION
  Report Type: 
  Country: None (occurrence: None)
  Receive Date: 20061215
  Receipt Date: 20061208
  Transmission Date: 20070319
  Serious: Yes (Other)
  Sender: FDA-Public Use
  Company Number: PHNU2006DE04094

PATIENT
  Age: 84 Year
  Sex: Female

DRUGS (2)
  1. AROMASIN [Concomitant]
     Route: 065
  2. ZOMETA [Suspect]
     Indication: METASTASES TO BONE
     Dosage: 4MG/5ML

REACTIONS (9)
  - ACTINOMYCOSIS [None]
  - ALVEOLITIS [None]
  - BIOPSY SITE UNSPECIFIED ABNORMAL [None]
  - IMPAIRED HEALING [None]
  - MUCOSAL INFLAMMATION [None]
  - ORAL BACTERIAL INFECTION [None]
  - ORAL FUNGAL INFECTION [None]
  - OSTEONECROSIS [None]
  - TOOTH EXTRACTION [None]
